FAERS Safety Report 19001111 (Version 1)
Quarter: 2021Q1

REPORT INFORMATION
  Report Type: Spontaneous
  Country: US (occurrence: US)
  Receive Date: 20210311
  Receipt Date: 20210311
  Transmission Date: 20210420
  Serious: Yes (Hospitalization, Other)
  Sender: FDA-Public Use
  Company Number: None

PATIENT
  Sex: Male

DRUGS (4)
  1. ALLOPURINOL; ASPIRIN; ATORVAST; DOK; ELIQUIS; FINASTER; FOLIC ACID; [Concomitant]
  2. TYLENOL; VIT D3; WARFARIN [Concomitant]
  3. HYDRALAZINE; JANUVIA; PROTONIX; POT CL ER; SPIRONOLACTONE; TORSEMIDE; [Concomitant]
  4. SILDENAFIL. [Suspect]
     Active Substance: SILDENAFIL
     Indication: PULMONARY ARTERIAL HYPERTENSION
     Dosage: ?          OTHER FREQUENCY:EVERY 8 HOURS;?
     Route: 048

REACTIONS (1)
  - Therapy interrupted [None]
